FAERS Safety Report 18468865 (Version 1)
Quarter: 2020Q4

REPORT INFORMATION
  Report Type: Spontaneous
  Country: CO (occurrence: CO)
  Receive Date: 20201105
  Receipt Date: 20201105
  Transmission Date: 20210114
  Serious: Yes (Other)
  Sender: FDA-Public Use
  Company Number: CO-AMGEN-COLNI2020174112

PATIENT
  Age: 58 Year
  Sex: Male
  Weight: 54 kg

DRUGS (25)
  1. FLUOROURACIL. [Concomitant]
     Active Substance: FLUOROURACIL
     Indication: RECTAL ADENOCARCINOMA
     Dosage: 500 MG/ 10 ML
     Dates: start: 2018
  2. ONDANSETRON [Concomitant]
     Active Substance: ONDANSETRON
     Indication: METASTASES TO LUNG
  3. LACTULOSE. [Concomitant]
     Active Substance: LACTULOSE
     Indication: GASTROINTESTINAL MOTILITY DISORDER
     Dosage: 10GR/15ML (66.7%), Q12H
     Route: 048
     Dates: start: 20200915
  4. DEXAMETHASONE PHOSPHATE [Concomitant]
     Active Substance: DEXAMETHASONE PHOSPHATE
     Indication: RECTAL ADENOCARCINOMA
     Dosage: 8 MG/2ML INJ SOL
     Dates: start: 2018
  5. FOSAPREPITANT [Concomitant]
     Active Substance: FOSAPREPITANT
     Indication: METASTASES TO LIVER
  6. OXALIPLATIN. [Concomitant]
     Active Substance: OXALIPLATIN
     Indication: METASTASES TO LUNG
  7. CALCIUM FOLINATE [Concomitant]
     Active Substance: LEUCOVORIN CALCIUM
     Indication: METASTASES TO LIVER
  8. ACETAMINOPHEN. [Concomitant]
     Active Substance: ACETAMINOPHEN
     Indication: PAIN
     Dosage: 1000 MILLIGRAM, Q8H
     Route: 048
     Dates: start: 20200915
  9. MVASI [Suspect]
     Active Substance: BEVACIZUMAB-AWWB
     Indication: RECTAL ADENOCARCINOMA
     Dosage: UNK
     Dates: start: 2018
  10. TRAMADOL HYDROCHLORIDE. [Concomitant]
     Active Substance: TRAMADOL HYDROCHLORIDE
     Indication: PAIN
     Dosage: 100 MILLIGRAM PER MILLILITRE, Q4H
     Route: 048
     Dates: start: 20201014
  11. DEXAMETHASONE PHOSPHATE [Concomitant]
     Active Substance: DEXAMETHASONE PHOSPHATE
     Indication: METASTASES TO LIVER
  12. DEXAMETHASONE PHOSPHATE [Concomitant]
     Active Substance: DEXAMETHASONE PHOSPHATE
     Indication: METASTASES TO LUNG
  13. FOSAPREPITANT [Concomitant]
     Active Substance: FOSAPREPITANT
     Indication: RECTAL ADENOCARCINOMA
  14. ONDANSETRON [Concomitant]
     Active Substance: ONDANSETRON
     Indication: RECTAL ADENOCARCINOMA
  15. ONDANSETRON [Concomitant]
     Active Substance: ONDANSETRON
     Indication: METASTASES TO LIVER
  16. OXALIPLATIN. [Concomitant]
     Active Substance: OXALIPLATIN
     Indication: RECTAL ADENOCARCINOMA
     Dosage: 100 MG: 134.3 MG
     Dates: start: 2018
  17. OXALIPLATIN. [Concomitant]
     Active Substance: OXALIPLATIN
     Indication: METASTASES TO LIVER
  18. MVASI [Suspect]
     Active Substance: BEVACIZUMAB-AWWB
     Indication: METASTASES TO LIVER
  19. FLUOROURACIL. [Concomitant]
     Active Substance: FLUOROURACIL
     Indication: METASTASES TO LIVER
  20. FLUOROURACIL. [Concomitant]
     Active Substance: FLUOROURACIL
     Indication: METASTASES TO LUNG
  21. MVASI [Suspect]
     Active Substance: BEVACIZUMAB-AWWB
     Indication: METASTASES TO LUNG
  22. CALCIUM FOLINATE [Concomitant]
     Active Substance: LEUCOVORIN CALCIUM
     Indication: RECTAL ADENOCARCINOMA
     Dosage: 10MG/ ML, QD
     Dates: start: 2018
  23. CALCIUM FOLINATE [Concomitant]
     Active Substance: LEUCOVORIN CALCIUM
     Indication: METASTASES TO LUNG
  24. PREGABALIN. [Concomitant]
     Active Substance: PREGABALIN
     Indication: PAIN
     Dosage: 50 MILLIGRAM, QD
     Route: 048
     Dates: start: 20200915
  25. FOSAPREPITANT [Concomitant]
     Active Substance: FOSAPREPITANT
     Indication: METASTASES TO LUNG

REACTIONS (4)
  - Haematochezia [Not Recovered/Not Resolved]
  - Hiccups [Not Recovered/Not Resolved]
  - Anxiety [Not Recovered/Not Resolved]
  - Feeling hot [Not Recovered/Not Resolved]

NARRATIVE: CASE EVENT DATE: 20201022
